FAERS Safety Report 6240659-X (Version None)
Quarter: 2009Q2

REPORT INFORMATION
  Report Type: 
  Country: None (occurrence: None)
  Receive Date: 20090623
  Receipt Date: 20081208
  Transmission Date: 20091009
  Serious: No
  Sender: FDA-Public Use
  Company Number: US-ASTRAZENECA-2008UW27251

PATIENT
  Age: 73 Year
  Sex: Female

DRUGS (2)
  1. PULMICORT FLEXHALER [Suspect]
     Indication: ASTHMA
     Dosage: 180 MCG ONE PUFF ONCE A DAY
     Route: 055
     Dates: start: 20081016
  2. SINGULAIR [Concomitant]

REACTIONS (1)
  - DYSPNOEA [None]
